FAERS Safety Report 20389585 (Version 2)
Quarter: 2025Q4

REPORT INFORMATION
  Report Type: Spontaneous
  Country: EU (occurrence: EU)
  Receive Date: 20220128
  Receipt Date: 20251031
  Transmission Date: 20260118
  Serious: Yes (Hospitalization, Other)
  Sender: AUROBINDO
  Company Number: EU-GLAXOSMITHKLINE-PL2022GSK006050

PATIENT
  Age: 46 Year
  Sex: Female

DRUGS (5)
  1. CEFUROXIME [Suspect]
     Active Substance: CEFUROXIME
     Indication: Tonsillitis
     Dosage: 500 MILLIGRAM, ONCE A DAY
     Route: 065
     Dates: start: 201410
  2. CEFUROXIME [Suspect]
     Active Substance: CEFUROXIME
     Indication: Pharyngitis streptococcal
  3. METOPROLOL [Concomitant]
     Active Substance: METOPROLOL
     Indication: Hypertension
     Dosage: 25 MILLIGRAM, ONCE A DAY
     Route: 065
  4. TIANEPTINE [Concomitant]
     Active Substance: TIANEPTINE
     Indication: Product used for unknown indication
     Dosage: 12.5 MILLIGRAM, ONCE A DAY
     Route: 065
     Dates: start: 201501
  5. MELOXICAM [Concomitant]
     Active Substance: MELOXICAM
     Indication: Product used for unknown indication
     Dosage: 7.5 MILLIGRAM, ONCE A DAY
     Route: 065
     Dates: start: 201410

REACTIONS (10)
  - Diarrhoea [Recovered/Resolved]
  - Mental impairment [Recovered/Resolved]
  - Decreased appetite [Recovered/Resolved]
  - Dysbiosis [Unknown]
  - Depression [Recovered/Resolved]
  - Depressed mood [Recovered/Resolved]
  - Tension [Recovered/Resolved]
  - Disturbance in attention [Recovered/Resolved]
  - Anhedonia [Recovered/Resolved]
  - Throat tightness [Unknown]

NARRATIVE: CASE EVENT DATE: 20150101
